FAERS Safety Report 7333350-X (Version None)
Quarter: 2011Q1

REPORT INFORMATION
  Report Type: 
  Country: None (occurrence: None)
  Receive Date: 20110304
  Receipt Date: 20110121
  Transmission Date: 20110831
  Serious: Yes (Death, Other)
  Sender: FDA-Public Use
  Company Number: US-BAXTER-2010BH000146

PATIENT
  Age: 50 Year
  Sex: Male
  Weight: 140 kg

DRUGS (54)
  1. HEPARIN SODIUM INJECTION [Suspect]
     Route: 042
     Dates: start: 20071227, end: 20080103
  2. MAGNESIUM SULFATE [Concomitant]
     Indication: PRODUCT USED FOR UNKNOWN INDICATION
     Route: 065
  3. SODIUM CHLORIDE [Concomitant]
     Indication: PRODUCT USED FOR UNKNOWN INDICATION
     Route: 065
  4. ACETAMINOPHEN [Concomitant]
     Indication: PRODUCT USED FOR UNKNOWN INDICATION
     Route: 065
  5. CLOPIDOGREL [Concomitant]
     Indication: PRODUCT USED FOR UNKNOWN INDICATION
     Route: 065
  6. INSULIN [Concomitant]
     Route: 042
  7. DOPAMINE [Concomitant]
     Indication: PRODUCT USED FOR UNKNOWN INDICATION
     Route: 042
  8. HEPARIN SODIUM INJECTION [Suspect]
     Indication: CATHETERISATION CARDIAC
     Route: 042
     Dates: start: 20071227, end: 20071227
  9. LISINOPRIL [Concomitant]
     Indication: PRODUCT USED FOR UNKNOWN INDICATION
     Route: 065
  10. METOPROLOL [Concomitant]
     Indication: PRODUCT USED FOR UNKNOWN INDICATION
     Route: 065
  11. PROPOFOL [Concomitant]
     Indication: PRODUCT USED FOR UNKNOWN INDICATION
     Route: 042
  12. PRIMAXIN [Concomitant]
     Indication: PRODUCT USED FOR UNKNOWN INDICATION
     Route: 042
  13. HEPARIN SODIUM INJECTION [Suspect]
     Indication: STENT PLACEMENT
     Route: 042
     Dates: start: 20071227, end: 20071227
  14. HEPARIN SODIUM INJECTION [Suspect]
     Route: 042
     Dates: start: 20071227, end: 20071227
  15. HEPARIN SODIUM INJECTION [Suspect]
     Route: 042
     Dates: start: 20071227, end: 20080103
  16. HEPARIN SODIUM INJECTION [Suspect]
     Route: 065
     Dates: start: 20071227, end: 20071227
  17. FUROSEMIDE [Concomitant]
     Indication: PRODUCT USED FOR UNKNOWN INDICATION
     Route: 065
  18. VANCOMYCIN [Concomitant]
     Indication: PRODUCT USED FOR UNKNOWN INDICATION
     Route: 065
  19. HEPARIN SODIUM INJECTION [Suspect]
     Route: 042
     Dates: start: 20071227, end: 20071227
  20. HEPARIN SODIUM INJECTION [Suspect]
     Route: 042
     Dates: start: 20071227, end: 20071227
  21. HEPARIN SODIUM INJECTION [Suspect]
     Route: 042
     Dates: start: 20071227, end: 20080103
  22. REOPRO [Suspect]
     Indication: CATHETERISATION CARDIAC
     Route: 065
     Dates: start: 20071227, end: 20071227
  23. REOPRO [Suspect]
     Route: 065
     Dates: start: 20071227, end: 20071227
  24. INSULIN [Concomitant]
     Indication: PRODUCT USED FOR UNKNOWN INDICATION
     Route: 065
  25. ASPIRIN [Concomitant]
     Indication: PRODUCT USED FOR UNKNOWN INDICATION
     Route: 065
  26. CAPTOPRIL [Concomitant]
     Indication: PRODUCT USED FOR UNKNOWN INDICATION
     Route: 065
  27. HEPARIN SODIUM INJECTION [Suspect]
     Route: 042
     Dates: start: 20071227, end: 20080103
  28. HEPARIN SODIUM INJECTION [Suspect]
     Route: 065
     Dates: start: 20071227, end: 20071227
  29. HEPARIN SODIUM 5,000 UNITS IN DEXTROSE 5% [Suspect]
     Indication: CATHETERISATION CARDIAC
     Route: 042
     Dates: start: 20071228, end: 20080103
  30. ROSUVASTATIN [Concomitant]
     Indication: PRODUCT USED FOR UNKNOWN INDICATION
     Route: 065
  31. 5% DEXTROSE INJECTION [Concomitant]
     Indication: PRODUCT USED FOR UNKNOWN INDICATION
     Route: 042
  32. PHENYLEPHRINE [Concomitant]
     Indication: PRODUCT USED FOR UNKNOWN INDICATION
     Route: 042
  33. ALBUTEROL SULFATE [Concomitant]
     Indication: PRODUCT USED FOR UNKNOWN INDICATION
     Route: 055
  34. HEPARIN SODIUM INJECTION [Suspect]
     Route: 042
     Dates: start: 20071227, end: 20080103
  35. HEPARIN SODIUM INJECTION [Suspect]
     Route: 042
     Dates: start: 20071227, end: 20071227
  36. HEPARIN SODIUM INJECTION [Suspect]
     Route: 042
     Dates: start: 20071227, end: 20080103
  37. HEPARIN SODIUM 5,000 UNITS IN DEXTROSE 5% [Suspect]
     Indication: STENT PLACEMENT
     Route: 042
     Dates: start: 20071228, end: 20080103
  38. VICODIN [Concomitant]
     Indication: PRODUCT USED FOR UNKNOWN INDICATION
     Route: 065
  39. FAMOTIDINE [Concomitant]
     Indication: PRODUCT USED FOR UNKNOWN INDICATION
     Route: 065
  40. POTASSIUM CHLORIDE [Concomitant]
     Indication: PRODUCT USED FOR UNKNOWN INDICATION
     Route: 065
  41. IPRATROPIUM BROMIDE [Concomitant]
     Indication: PRODUCT USED FOR UNKNOWN INDICATION
     Route: 055
  42. VANCOMYCIN [Concomitant]
     Route: 065
  43. HEPARIN SODIUM INJECTION [Suspect]
     Route: 042
     Dates: start: 20071227, end: 20071227
  44. HEPARIN SODIUM INJECTION [Suspect]
     Route: 042
     Dates: start: 20071227, end: 20080103
  45. HEPARIN SODIUM INJECTION [Suspect]
     Route: 042
     Dates: start: 20071227, end: 20080103
  46. HEPARIN SODIUM INJECTION [Suspect]
     Route: 042
     Dates: start: 20071227, end: 20080103
  47. NOREPINEPHRINE BITARTRATE [Concomitant]
     Indication: PRODUCT USED FOR UNKNOWN INDICATION
     Route: 042
  48. HEPARIN SODIUM INJECTION [Suspect]
     Route: 042
     Dates: start: 20071227, end: 20080103
  49. HEPARIN SODIUM INJECTION [Suspect]
     Route: 042
     Dates: start: 20071227, end: 20071227
  50. HEPARIN SODIUM INJECTION [Suspect]
     Route: 042
     Dates: start: 20071227, end: 20080103
  51. HEPARIN SODIUM INJECTION [Suspect]
     Route: 042
     Dates: start: 20071227, end: 20080103
  52. ESOMEPRAZOLE [Concomitant]
     Indication: PRODUCT USED FOR UNKNOWN INDICATION
     Route: 065
  53. LEVOFLOXACIN [Concomitant]
     Indication: PRODUCT USED FOR UNKNOWN INDICATION
     Route: 065
  54. DOBUTAMINE HCL [Concomitant]
     Indication: PRODUCT USED FOR UNKNOWN INDICATION
     Route: 042

REACTIONS (23)
  - CARDIAC FAILURE ACUTE [None]
  - UNRESPONSIVE TO STIMULI [None]
  - CARDIOGENIC SHOCK [None]
  - CARDIAC ARREST [None]
  - ACUTE LEFT VENTRICULAR FAILURE [None]
  - METABOLIC ACIDOSIS [None]
  - HYPOXIC-ISCHAEMIC ENCEPHALOPATHY [None]
  - TACHYCARDIA [None]
  - PUPILLARY REFLEX IMPAIRED [None]
  - RENAL FAILURE ACUTE [None]
  - HAEMATOMA [None]
  - PULMONARY OEDEMA [None]
  - CEREBRAL CIRCULATORY FAILURE [None]
  - SEPSIS [None]
  - HYPOTENSION [None]
  - EPISTAXIS [None]
  - PULSELESS ELECTRICAL ACTIVITY [None]
  - RESPIRATORY ACIDOSIS [None]
  - ANAEMIA [None]
  - HEPARIN-INDUCED THROMBOCYTOPENIA [None]
  - GINGIVAL BLEEDING [None]
  - ACUTE MYOCARDIAL INFARCTION [None]
  - RESPIRATORY FAILURE [None]
